FAERS Safety Report 8442855-X (Version None)
Quarter: 2012Q2

REPORT INFORMATION
  Report Type: 
  Country: None (occurrence: None)
  Receive Date: 20120323
  Receipt Date: 20110810
  Transmission Date: 20120825
  Serious: Yes (Disabling)
  Sender: FDA-Public Use
  Company Number: 163-21880-11061464

PATIENT
  Age: 88 Year
  Sex: Female

DRUGS (6)
  1. TENORETIC 100 [Concomitant]
  2. VICODIN [Concomitant]
  3. METFFORMIN HYDROCHLORIDE [Concomitant]
  4. REVLIMID [Suspect]
     Indication: MULTIPLE MYELOMA
     Dosage: 25 MG, DAILY FOR 21 DAYS, PO; 5 MG, DAILY 21/28, PO
     Route: 048
     Dates: start: 20110611
  5. REVLIMID [Suspect]
     Indication: MULTIPLE MYELOMA
     Dosage: 25 MG, DAILY FOR 21 DAYS, PO; 5 MG, DAILY 21/28, PO
     Route: 048
     Dates: start: 20110407, end: 20110420
  6. ENALAPRIL MALEATE [Concomitant]

REACTIONS (2)
  - RASH PRURITIC [None]
  - HYPOTENSION [None]
